FAERS Safety Report 5009761-4 (Version None)
Quarter: 2006Q2

REPORT INFORMATION
  Report Type: 
  Country: None (occurrence: None)
  Receive Date: 20060524
  Receipt Date: 20060516
  Transmission Date: 20061013
  Serious: Yes (Life-Threatening)
  Sender: FDA-Public Use
  Company Number: GB-ROCHE-448662

PATIENT
  Age: 52 Year
  Sex: Male
  Weight: 92 kg

DRUGS (2)
  1. XENICAL [Suspect]
     Indication: OBESITY
     Route: 048
     Dates: start: 20060502
  2. UNSPECIFIED DRUGS [Concomitant]

REACTIONS (1)
  - BLOOD GLUCOSE INCREASED [None]
